FAERS Safety Report 15534100 (Version 1)
Quarter: 2018Q4

REPORT INFORMATION
  Report Type: Report from Study
  Country: US (occurrence: US)
  Receive Date: 20181021
  Receipt Date: 20181021
  Transmission Date: 20190205
  Serious: Yes (Other)
  Sender: FDA-Public Use
  Company Number: US-UCBSA-2018045716

PATIENT
  Age: 20 Year
  Sex: Female

DRUGS (2)
  1. LEVETIRACETAM. [Suspect]
     Active Substance: LEVETIRACETAM
     Indication: EPILEPSY
     Dosage: UNK
  2. COD LIVER OIL [Concomitant]
     Active Substance: COD LIVER OIL
     Indication: MEMORY IMPAIRMENT

REACTIONS (4)
  - Epileptic aura [Unknown]
  - Anxiety [Unknown]
  - Migraine [Unknown]
  - Depression [Unknown]
